FAERS Safety Report 5332698-8 (Version None)
Quarter: 2007Q2

REPORT INFORMATION
  Report Type: 
  Country: None (occurrence: None)
  Receive Date: 20070523
  Receipt Date: 20070511
  Transmission Date: 20071010
  Serious: Yes (Hospitalization)
  Sender: FDA-Public Use
  Company Number: JP-PFIZER INC-2007034185

PATIENT
  Sex: Female

DRUGS (5)
  1. GABAPEN [Suspect]
     Indication: EPILEPSY
     Dosage: DAILY DOSE:1500MG
     Route: 048
  2. DIAMOX [Concomitant]
     Indication: EPILEPSY
     Route: 048
  3. EXCEGRAN [Concomitant]
     Indication: EPILEPSY
     Route: 048
     Dates: start: 19990308
  4. ALESION [Concomitant]
     Route: 048
     Dates: start: 20070322, end: 20070329
  5. MUCODYNE [Concomitant]
     Route: 048
     Dates: start: 20070322, end: 20070329

REACTIONS (3)
  - ENDOMETRIAL HYPERTROPHY [None]
  - HAIR COLOUR CHANGES [None]
  - MENORRHAGIA [None]
